FAERS Safety Report 6618006-0 (Version None)
Quarter: 2010Q1

REPORT INFORMATION
  Report Type: 
  Country: None (occurrence: None)
  Receive Date: 20100223
  Receipt Date: 20091207
  Transmission Date: 20100710
  Serious: Yes (Other)
  Sender: FDA-Public Use
  Company Number: 8046142

PATIENT
  Sex: Male

DRUGS (1)
  1. CERTOLIZUMAB PEGOL [Suspect]
     Indication: CROHN'S DISEASE
     Dosage: (400 MG 1X/MONTH SUBCUTANEOUS)
     Route: 058
     Dates: start: 20090203, end: 20090601

REACTIONS (4)
  - CHEST DISCOMFORT [None]
  - NEOPLASM MALIGNANT [None]
  - SQUAMOUS CELL CARCINOMA [None]
  - URINARY TRACT INFECTION [None]
